FAERS Safety Report 22264452 (Version 1)
Quarter: 2023Q2

REPORT INFORMATION
  Report Type: Spontaneous
  Country: DE (occurrence: DE)
  Receive Date: 20230428
  Receipt Date: 20230428
  Transmission Date: 20230722
  Serious: Yes (Hospitalization)
  Sender: FDA-Public Use
  Company Number: DE-MYLANLABS-2023M1042919

PATIENT
  Age: 84 Year
  Sex: Female

DRUGS (7)
  1. TRANEXAMIC ACID [Suspect]
     Active Substance: TRANEXAMIC ACID
     Indication: Haemorrhage prophylaxis
     Dosage: 20 MILLIGRAM/KILOGRAM, QH, BOLUS
     Route: 042
  2. TRANEXAMIC ACID [Suspect]
     Active Substance: TRANEXAMIC ACID
     Dosage: 4 MILLIGRAM/KILOGRAM, QH
     Route: 042
  3. SUFENTANIL [Concomitant]
     Active Substance: SUFENTANIL
     Indication: Product used for unknown indication
     Dosage: 0.52 MICROGRAM/KILOGRAM
     Route: 065
  4. PROPOFOL [Concomitant]
     Active Substance: PROPOFOL
     Indication: Product used for unknown indication
     Dosage: 1.67 MILLIGRAM/KILOGRAM
     Route: 065
  5. ATRACURIUM BESYLATE [Concomitant]
     Active Substance: ATRACURIUM BESYLATE
     Indication: Product used for unknown indication
     Dosage: 0.21 MILLIGRAM/KILOGRAM
     Route: 065
  6. NOREPINEPHRINE [Concomitant]
     Active Substance: NOREPINEPHRINE
     Indication: Product used for unknown indication
     Dosage: 0.13 MICROGRAM/KILOGRAM, QMINUTE
     Route: 065
  7. CAFEDRINE;THEODRENALINE [Concomitant]
     Indication: Product used for unknown indication
     Dosage: 0.5 MILLILITER
     Route: 065

REACTIONS (1)
  - Drug ineffective [Unknown]
